FAERS Safety Report 7460051-X (Version None)
Quarter: 2011Q2

REPORT INFORMATION
  Report Type: 
  Country: None (occurrence: None)
  Receive Date: 20110505
  Receipt Date: 20110421
  Transmission Date: 20111010
  Serious: Yes (Other)
  Sender: FDA-Public Use
  Company Number: PHHY2011US17586

PATIENT
  Sex: Male
  Weight: 26.81 kg

DRUGS (3)
  1. FOCALIN [Suspect]
     Indication: ATTENTION DEFICIT/HYPERACTIVITY DISORDER
     Dosage: UNK MG, UNK
     Route: 048
     Dates: start: 20101201, end: 20110301
  2. CLONIDINE [Suspect]
  3. PAXIL [Concomitant]
     Dosage: 10 MG, QD
     Route: 048
     Dates: end: 20110301

REACTIONS (7)
  - AGGRESSION [None]
  - DRUG EFFECT DECREASED [None]
  - SELF INJURIOUS BEHAVIOUR [None]
  - DECREASED APPETITE [None]
  - NAIL PICKING [None]
  - REBOUND EFFECT [None]
  - ABNORMAL BEHAVIOUR [None]
